FAERS Safety Report 8258421 (Version 3)
Quarter: 2013Q1

REPORT INFORMATION
  Report Type: Spontaneous
  Country: US (occurrence: US)
  Receive Date: 20111122
  Receipt Date: 20130211
  Transmission Date: 20140127
  Serious: Yes (Other)
  Sender: FDA-Public Use
  Company Number: US-BRISTOL-MYERS SQUIBB COMPANY-16229320

PATIENT
  Sex: Female

DRUGS (1)
  1. METFORMIN HCL [Suspect]
     Dosage: STARTED WITH 850MG TID?DOSE RECUCED TO 1000MG BID

REACTIONS (3)
  - Cardiac arrest [Unknown]
  - Blood magnesium decreased [Unknown]
  - Diarrhoea [Recovered/Resolved]
